FAERS Safety Report 21752055 (Version 1)
Quarter: 2022Q4

REPORT INFORMATION
  Report Type: Spontaneous
  Country: US (occurrence: US)
  Receive Date: 20221220
  Receipt Date: 20221220
  Transmission Date: 20230113
  Serious: Yes (Hospitalization, Other)
  Sender: FDA-Public Use
  Company Number: US-GILEAD-2022-0609715

PATIENT
  Age: 74 Year
  Sex: Male

DRUGS (5)
  1. EPCLUSA [Suspect]
     Active Substance: SOFOSBUVIR\VELPATASVIR
     Indication: Chronic hepatitis C
     Dosage: 1 DOSAGE FORM, (400/100MG)
     Route: 065
     Dates: start: 20221124
  2. FUROSEMIDE [Concomitant]
     Active Substance: FUROSEMIDE
     Indication: Ascites
     Dates: start: 20220820
  3. SPIRONOLACTONE [Concomitant]
     Active Substance: SPIRONOLACTONE
  4. CARVEDILOL [Concomitant]
     Active Substance: CARVEDILOL
  5. ZINC [Concomitant]
     Active Substance: ZINC

REACTIONS (2)
  - Acute kidney injury [Not Recovered/Not Resolved]
  - Hepatorenal syndrome [Unknown]

NARRATIVE: CASE EVENT DATE: 20221213
